FAERS Safety Report 10275824 (Version 3)
Quarter: 2014Q3

REPORT INFORMATION
  Report Type: Spontaneous
  Country: GB (occurrence: GB)
  Receive Date: 20140703
  Receipt Date: 20140731
  Transmission Date: 20150326
  Serious: Yes (Death, Hospitalization, Other)
  Sender: FDA-Public Use
  Company Number: PHFR2014GB003459

PATIENT
  Age: 58 Year
  Sex: Male
  Weight: 107 kg

DRUGS (2)
  1. PARACETAMOL [Concomitant]
     Active Substance: ACETAMINOPHEN
     Dosage: 1 G, QID, ORALLY
     Route: 048
  2. CLOZARIL [Suspect]
     Active Substance: CLOZAPINE
     Indication: SCHIZOPHRENIA
     Dosage: 400 MG ORALLY
     Route: 048
     Dates: start: 20010701

REACTIONS (11)
  - Abdominal distension [Fatal]
  - Pneumonia aspiration [Fatal]
  - Diarrhoea [Unknown]
  - Abdominal pain [Fatal]
  - Escherichia urinary tract infection [Unknown]
  - Constipation [Fatal]
  - Intestinal dilatation [Fatal]
  - Sudden death [Fatal]
  - Flatulence [Unknown]
  - Volvulus [Fatal]
  - Vomiting [Fatal]

NARRATIVE: CASE EVENT DATE: 20140415
